FAERS Safety Report 10395563 (Version 1)
Quarter: 2014Q3

REPORT INFORMATION
  Report Type: Spontaneous
  Country: US (occurrence: None)
  Receive Date: 20140818
  Receipt Date: 20140818
  Transmission Date: 20150326
  Serious: Yes (Hospitalization)
  Sender: FDA-Public Use
  Company Number: 2014VER00148

PATIENT
  Age: 16 Year
  Sex: Male
  Weight: 88.4 kg

DRUGS (1)
  1. MYORISAN [Suspect]
     Active Substance: ISOTRETINOIN
     Indication: ACNE
     Route: 048
     Dates: start: 201310, end: 2014

REACTIONS (5)
  - Wound infection staphylococcal [None]
  - Furuncle [None]
  - Peripheral swelling [None]
  - Wound [None]
  - Blister [None]

NARRATIVE: CASE EVENT DATE: 201406
